FAERS Safety Report 23799911 (Version 3)
Quarter: 2024Q2

REPORT INFORMATION
  Report Type: Report from Study
  Country: JP (occurrence: None)
  Receive Date: 20240430
  Receipt Date: 20240625
  Transmission Date: 20240715
  Serious: Yes (Death)
  Sender: FDA-Public Use
  Company Number: 2024A096729

PATIENT
  Age: 62 Year
  Sex: Female
  Weight: 43 kg

DRUGS (12)
  1. EVUSHELD [Suspect]
     Active Substance: CILGAVIMAB\TIXAGEVIMAB
     Indication: COVID-19 prophylaxis
     Dosage: TIXAGEVIMAB AT 300 MG/CILGAVIMAB AT 300 MG
     Route: 030
     Dates: start: 20231101, end: 20231101
  2. PREVYMIS [Concomitant]
     Active Substance: LETERMOVIR
     Indication: Prophylaxis
     Dosage: DOSE UNKNOWN
     Route: 048
     Dates: end: 20231117
  3. LEVOFLOXACIN HEMIHYDRATE [Concomitant]
     Active Substance: LEVOFLOXACIN
     Indication: Prophylaxis
     Dosage: DOSE UNKNOWN
     Route: 048
     Dates: end: 20240103
  4. NOXAFIL [Concomitant]
     Active Substance: POSACONAZOLE
     Indication: Prophylaxis
     Dosage: DOSE UNKNOWN
     Route: 048
     Dates: end: 20240109
  5. ZOVIRAX [Concomitant]
     Active Substance: ACYCLOVIR
     Indication: Prophylaxis
     Dosage: DOSE UNKNOWN
     Route: 048
     Dates: end: 20240113
  6. PROGRAF [Concomitant]
     Active Substance: TACROLIMUS
     Indication: Prophylaxis
     Dosage: DOSE UNKNOWN
     Route: 048
     Dates: end: 20240103
  7. PREDONINE [Concomitant]
     Active Substance: PREDNISOLONE
     Indication: Prophylaxis
     Dosage: DOSE UNKNOWN
     Route: 048
     Dates: end: 20240105
  8. SULFAMETHOXAZOLE\TRIMETHOPRIM [Concomitant]
     Active Substance: SULFAMETHOXAZOLE\TRIMETHOPRIM
     Indication: Prophylaxis
     Dosage: DOSE UNKNOWN
     Route: 048
     Dates: end: 20240108
  9. POTASSIUM ASPARTATE [Concomitant]
     Active Substance: POTASSIUM ASPARTATE
     Indication: Hypokalaemia
     Dosage: DOSE UNKNOWN
     Route: 048
     Dates: start: 20231220, end: 20240108
  10. SAMSCA [Concomitant]
     Active Substance: TOLVAPTAN
     Indication: Hyponatraemia
     Dosage: DOSE UNKNOWN
     Route: 048
     Dates: start: 20240109
  11. VENCLEXTA [Concomitant]
     Active Substance: VENETOCLAX
     Indication: Myelodysplastic syndrome
     Dosage: DOSE UNKNOWN
     Route: 048
     Dates: start: 20240110
  12. VIDAZA [Concomitant]
     Active Substance: AZACITIDINE
     Indication: Myelodysplastic syndrome
     Dosage: DOSE UNKNOWN
     Route: 065
     Dates: start: 20240110, end: 20240117

REACTIONS (2)
  - General physical health deterioration [Fatal]
  - Acute myeloid leukaemia [Fatal]

NARRATIVE: CASE EVENT DATE: 20240104
